FAERS Safety Report 20972863 (Version 2)
Quarter: 2022Q3

REPORT INFORMATION
  Report Type: Report from Study
  Country: US (occurrence: US)
  Receive Date: 20220617
  Receipt Date: 20220720
  Transmission Date: 20221027
  Serious: Yes (Hospitalization)
  Sender: FDA-Public Use
  Company Number: US-BIOGEN-2022BI01131068

PATIENT
  Sex: Female

DRUGS (2)
  1. VUMERITY [Suspect]
     Active Substance: DIROXIMEL FUMARATE
     Indication: Multiple sclerosis
     Dosage: STARTER DOSE
     Route: 050
     Dates: start: 20220214
  2. VUMERITY [Suspect]
     Active Substance: DIROXIMEL FUMARATE
     Dosage: MAINTENANCE DOSE
     Route: 050

REACTIONS (4)
  - Chest pain [Recovered/Resolved]
  - Gastrointestinal disorder [Recovered/Resolved]
  - Vomiting [Unknown]
  - Dyspnoea [Recovered/Resolved]
